FAERS Safety Report 6634799-0 (Version None)
Quarter: 2010Q1

REPORT INFORMATION
  Report Type: 
  Country: None (occurrence: None)
  Receive Date: 20100315
  Receipt Date: 20100303
  Transmission Date: 20100710
  Serious: Yes (Other)
  Sender: FDA-Public Use
  Company Number: JP-PFIZER INC-2010028790

PATIENT
  Age: 73 Year
  Sex: Female

DRUGS (3)
  1. SULPERAZON [Suspect]
     Dosage: UNK
     Route: 042
  2. WARFARIN POTASSIUM [Concomitant]
     Dosage: UNK
     Route: 048
  3. VANCOMYCIN [Concomitant]

REACTIONS (1)
  - HAEMORRHAGIC DIATHESIS [None]
